FAERS Safety Report 5269462-4 (Version None)
Quarter: 2007Q1

REPORT INFORMATION
  Report Type: 
  Country: None (occurrence: None)
  Receive Date: 20070314
  Receipt Date: 20070226
  Transmission Date: 20070707
  Serious: Yes (Congenital Anomaly)
  Sender: FDA-Public Use
  Company Number: 153729ISR

PATIENT
  Sex: Female

DRUGS (4)
  1. CARBAMAZEPINE [Suspect]
     Dosage: 1400 MG TRANSPLACENTAL
     Route: 064
  2. CLOBAZAM [Suspect]
     Dosage: 10 MG TRANSPLACENTAL
     Route: 064
  3. LEVETIRACETAM [Suspect]
     Indication: EPILEPSY
     Dosage: 2500 MG TRANSPLACENTAL
     Route: 064
  4. TOPIRAMATE [Suspect]
     Dosage: 100 MG TRANSPLACENTAL
     Route: 064

REACTIONS (2)
  - DRUG EXPOSURE DURING PREGNANCY [None]
  - HIP DYSPLASIA [None]
